FAERS Safety Report 9890976 (Version 2)
Quarter: 2014Q1

REPORT INFORMATION
  Report Type: Spontaneous
  Country: US (occurrence: US)
  Receive Date: 20140212
  Receipt Date: 20140220
  Transmission Date: 20141002
  Serious: Yes (Other)
  Sender: FDA-Public Use
  Company Number: US-BEH-2014040570

PATIENT
  Sex: Female

DRUGS (1)
  1. BERINERT [Suspect]

REACTIONS (1)
  - Hereditary angioedema [Unknown]
